FAERS Safety Report 11944867 (Version 1)
Quarter: 2016Q1

REPORT INFORMATION
  Report Type: Spontaneous
  Country: US (occurrence: US)
  Receive Date: 20160125
  Receipt Date: 20160125
  Transmission Date: 20160526
  Serious: No
  Sender: FDA-Public Use
  Company Number: US-PFIZER INC-2016013035

PATIENT
  Sex: Female

DRUGS (1)
  1. ADVIL [Suspect]
     Active Substance: IBUPROFEN
     Dosage: UNK (4-13 CAPLETS A DAY FOR ALMOST 3 YEARS)

REACTIONS (3)
  - Intentional product misuse [Unknown]
  - Drug effect incomplete [Unknown]
  - Feeling abnormal [Unknown]
